FAERS Safety Report 25997952 (Version 4)
Quarter: 2025Q4

REPORT INFORMATION
  Report Type: Report from Study
  Country: US (occurrence: US)
  Receive Date: 20251105
  Receipt Date: 20251212
  Transmission Date: 20260118
  Serious: Yes (Hospitalization, Other)
  Sender: MIRUM PHARMACEUTICALS
  Company Number: US-MIRUM PHARMACEUTICALS, INC.-US-MIR-25-00810

PATIENT

DRUGS (4)
  1. LIVMARLI [Suspect]
     Active Substance: MARALIXIBAT CHLORIDE
     Indication: Cholestatic pruritus
     Dosage: 3 MILLILITER, QD
     Route: 048
     Dates: start: 202404, end: 20251104
  2. FUROSEMIDE [Concomitant]
     Active Substance: FUROSEMIDE
     Indication: Fluid retention
     Dosage: 40 MILLIGRAM, QD
     Route: 065
     Dates: start: 202505
  3. SPIRONOLACTONE [Concomitant]
     Active Substance: SPIRONOLACTONE
     Indication: Fluid retention
     Dosage: 100 MILLIGRAM, QD
     Route: 065
     Dates: start: 202505
  4. URSODIOL [Concomitant]
     Active Substance: URSODIOL
     Indication: Cholangitis sclerosing
     Dosage: 500 MILLIGRAM, BID (FOR YEARS)
     Route: 065

REACTIONS (6)
  - Liver transplant [Recovered/Resolved]
  - Ascites [Recovered/Resolved]
  - Cholecystitis chronic [Recovered/Resolved]
  - Hepatic mass [Recovered/Resolved]
  - Gallbladder polyp [Recovered/Resolved]
  - Off label use [Unknown]

NARRATIVE: CASE EVENT DATE: 20240401
